FAERS Safety Report 7568385-5 (Version None)
Quarter: 2011Q2

REPORT INFORMATION
  Report Type: 
  Country: None (occurrence: None)
  Receive Date: 20110623
  Receipt Date: 20110610
  Transmission Date: 20111010
  Serious: Yes (Death)
  Sender: FDA-Public Use
  Company Number: B0725992A

PATIENT
  Sex: Female

DRUGS (4)
  1. PREDNISOLONE [Concomitant]
     Dosage: 10MG PER DAY
     Route: 048
  2. FUROSEMIDE [Concomitant]
     Dosage: 200MG PER DAY
     Route: 048
  3. LEVOFLOXACIN [Concomitant]
     Dosage: 500MG PER DAY
     Route: 048
  4. PROMACTA [Suspect]
     Indication: IDIOPATHIC THROMBOCYTOPENIC PURPURA
     Dosage: 12.5MG PER DAY
     Route: 048
     Dates: start: 20110425, end: 20110501

REACTIONS (1)
  - DEATH [None]
